FAERS Safety Report 23575117 (Version 1)
Quarter: 2024Q1

REPORT INFORMATION
  Report Type: Spontaneous
  Country: US (occurrence: None)
  Receive Date: 20240227
  Receipt Date: 20240227
  Transmission Date: 20240410
  Serious: No
  Sender: FDA-Public Use
  Company Number: None

PATIENT
  Age: 36 Year
  Sex: Female
  Weight: 81.8 kg

DRUGS (1)
  1. HIZENTRA [Suspect]
     Active Substance: HUMAN IMMUNOGLOBULIN G
     Indication: Selective IgA immunodeficiency
     Dosage: FREQUENCY : WEEKLY;?
     Route: 041
     Dates: start: 20191121

REACTIONS (2)
  - Infusion site pruritus [None]
  - Infusion site rash [None]

NARRATIVE: CASE EVENT DATE: 20240226
